FAERS Safety Report 9976614 (Version 1)
Quarter: 2014Q1

REPORT INFORMATION
  Report Type: Report from Study
  Country: US (occurrence: US)
  Receive Date: 20140306
  Receipt Date: 20140306
  Transmission Date: 20141002
  Serious: No
  Sender: FDA-Public Use
  Company Number: US-ABBVIE-13P-163-1165876-00

PATIENT
  Sex: Female

DRUGS (8)
  1. HUMIRA [Suspect]
     Indication: RHEUMATOID ARTHRITIS
  2. HUMIRA [Suspect]
     Indication: CROHN^S DISEASE
     Dates: start: 20131001, end: 20131001
  3. HUMIRA [Suspect]
     Dates: start: 20131015, end: 20131015
  4. HUMIRA [Suspect]
     Dates: start: 20131029
  5. ARAVA [Concomitant]
     Indication: RHEUMATOID ARTHRITIS
  6. VITAMINS [Concomitant]
     Indication: VITAMIN SUPPLEMENTATION
  7. ZOLOFT [Concomitant]
     Indication: DEPRESSION
  8. METOPROLOL [Concomitant]
     Indication: HYPERTENSION

REACTIONS (2)
  - Drug effect decreased [Not Recovered/Not Resolved]
  - Crohn^s disease [Not Recovered/Not Resolved]
